FAERS Safety Report 6116525-7 (Version None)
Quarter: 2009Q1

REPORT INFORMATION
  Report Type: 
  Country: None (occurrence: None)
  Receive Date: 20090314
  Receipt Date: 20081216
  Transmission Date: 20090719
  Serious: No
  Sender: FDA-Public Use
  Company Number: US-ABBOTT-08P-163-0493305-00

PATIENT
  Sex: Female
  Weight: 71.732 kg

DRUGS (4)
  1. HUMIRA [Suspect]
     Indication: INFLAMMATORY BOWEL DISEASE
     Dates: start: 20081212, end: 20081212
  2. HUMIRA [Suspect]
  3. ASACOL [Concomitant]
     Indication: DRUG USE FOR UNKNOWN INDICATION
  4. PREDNISONE [Concomitant]
     Indication: DRUG USE FOR UNKNOWN INDICATION
     Dosage: TAPERED

REACTIONS (2)
  - INCORRECT DOSE ADMINISTERED [None]
  - WRONG TECHNIQUE IN DRUG USAGE PROCESS [None]
